FAERS Safety Report 14763589 (Version 1)
Quarter: 2018Q2

REPORT INFORMATION
  Report Type: Spontaneous
  Country: FR (occurrence: FR)
  Receive Date: 20180416
  Receipt Date: 20180416
  Transmission Date: 20180711
  Serious: Yes (Other)
  Sender: FDA-Public Use
  Company Number: FR-ROCHE-2105943

PATIENT
  Age: 55 Year
  Sex: Female
  Weight: 65 kg

DRUGS (2)
  1. XELODA [Suspect]
     Active Substance: CAPECITABINE
     Indication: BREAST CANCER METASTATIC
     Route: 048
     Dates: start: 20170727
  2. PACLITAXEL KABI [Suspect]
     Active Substance: PACLITAXEL
     Indication: BREAST CANCER METASTATIC
     Dosage: FORM STRENGTH 6 MG/ML
     Route: 042
     Dates: start: 201704, end: 201707

REACTIONS (3)
  - Onycholysis [Recovered/Resolved]
  - Palmar-plantar erythrodysaesthesia syndrome [Recovered/Resolved]
  - Morphoea [Recovering/Resolving]

NARRATIVE: CASE EVENT DATE: 20170823
